FAERS Safety Report 5028173-0 (Version None)
Quarter: 2006Q2

REPORT INFORMATION
  Report Type: 
  Country: None (occurrence: None)
  Receive Date: 20060613
  Receipt Date: 20060531
  Transmission Date: 20061013
  Serious: Yes (Hospitalization, Other)
  Sender: FDA-Public Use
  Company Number: 2006058217

PATIENT
  Age: 49 Year
  Sex: Male
  Weight: 99.7913 kg

DRUGS (3)
  1. CELEBREX [Suspect]
     Indication: ARTHRALGIA
     Dosage: 200 MG
     Dates: start: 20041011
  2. CELEBREX [Suspect]
     Indication: ARTHRITIS
     Dosage: 200 MG
     Dates: start: 20041011
  3. CELEBREX [Suspect]
     Indication: BACK PAIN
     Dosage: 200 MG
     Dates: start: 20041011

REACTIONS (5)
  - ACUTE MYOCARDIAL INFARCTION [None]
  - ARTERIAL OCCLUSIVE DISEASE [None]
  - BLOOD CHOLESTEROL INCREASED [None]
  - DIABETES MELLITUS [None]
  - HEART INJURY [None]
